FAERS Safety Report 22131159 (Version 1)
Quarter: 2023Q1

REPORT INFORMATION
  Report Type: Spontaneous
  Country: SE (occurrence: SE)
  Receive Date: 20230323
  Receipt Date: 20230323
  Transmission Date: 20230418
  Serious: Yes (Other)
  Sender: FDA-Public Use
  Company Number: None

PATIENT
  Age: 90 Year
  Sex: Female

DRUGS (9)
  1. MEMANTINE [Suspect]
     Active Substance: MEMANTINE
     Indication: Dementia
     Dates: start: 20230210, end: 20230219
  2. METFORMIN HYDROCHLORIDE [Concomitant]
     Active Substance: METFORMIN HYDROCHLORIDE
     Indication: Product used for unknown indication
     Dates: start: 20230201
  3. LOSARTAN [Concomitant]
     Active Substance: LOSARTAN
     Indication: Product used for unknown indication
     Dates: start: 20221114
  4. ELIQUIS [Concomitant]
     Active Substance: APIXABAN
     Indication: Product used for unknown indication
     Dates: start: 20230118
  5. PARACETAMOL ORIFARM [Concomitant]
     Indication: Product used for unknown indication
     Dosage: PAINKILLER L-2VB, MAX 6 DGL.
     Dates: start: 20230201
  6. Propyderm [Concomitant]
     Indication: Product used for unknown indication
     Dosage: FOR DRY SKIN 2-3 TIMES PER WEEK.
     Dates: start: 20220718
  7. BUDESONIDE\FORMOTEROL FUMARATE [Concomitant]
     Active Substance: BUDESONIDE\FORMOTEROL FUMARATE
     Indication: Product used for unknown indication
     Dosage: 1 INHALATION AT 8 AM AND 1 INHALATION AT 10 PM IF NECESSARY, DOUBLE DOSE IN CASE OF RESPIRATORY TRAC
     Route: 055
     Dates: start: 20221219
  8. MOMETASONE FUROATE [Concomitant]
     Active Substance: MOMETASONE FUROATE
     Indication: Product used for unknown indication
     Dosage: EXTERNALLY AN APPLICATION IF NECESSARY.
     Dates: start: 20221219
  9. BETAPRED [Concomitant]
     Active Substance: BETAMETHASONE SODIUM PHOSPHATE
     Indication: Product used for unknown indication
     Dosage: 6XL FOR 3-5 DAYS AGAINST ASTHMA.
     Dates: start: 20221219

REACTIONS (2)
  - Hyponatraemia [Recovered/Resolved]
  - Headache [Recovered/Resolved]

NARRATIVE: CASE EVENT DATE: 20230215
